FAERS Safety Report 16799037 (Version 1)
Quarter: 2019Q3

REPORT INFORMATION
  Report Type: Spontaneous
  Country: US (occurrence: US)
  Receive Date: 20190912
  Receipt Date: 20190912
  Transmission Date: 20191005
  Serious: No
  Sender: FDA-Public Use
  Company Number: US-009507513-1908USA012784

PATIENT
  Age: 73 Year
  Sex: Male

DRUGS (1)
  1. KEYTRUDA [Suspect]
     Active Substance: PEMBROLIZUMAB
     Indication: METASTATIC GASTRIC CANCER
     Dosage: 200 MG EVERY 21 DAYS
     Route: 042

REACTIONS (4)
  - Infusion related reaction [Unknown]
  - Oxygen saturation decreased [Unknown]
  - Throat irritation [Unknown]
  - Dyspnoea [Unknown]
